FAERS Safety Report 6115027-1 (Version None)
Quarter: 2009Q1

REPORT INFORMATION
  Report Type: 
  Country: None (occurrence: None)
  Receive Date: 20090313
  Receipt Date: 20090306
  Transmission Date: 20090719
  Serious: Yes (Hospitalization)
  Sender: FDA-Public Use
  Company Number: A0772853A

PATIENT
  Age: 48 Year
  Sex: Male
  Weight: 65.9 kg

DRUGS (4)
  1. AVANDIA [Suspect]
     Indication: DIABETES MELLITUS
     Dosage: 4MG TWICE PER DAY
     Route: 048
     Dates: start: 20060404, end: 20070601
  2. LISINOPRIL [Concomitant]
  3. ALBUTEROL [Concomitant]
  4. NORVASC [Concomitant]

REACTIONS (1)
  - CARDIAC DISORDER [None]
